FAERS Safety Report 7905787-9 (Version None)
Quarter: 2011Q4

REPORT INFORMATION
  Report Type: 
  Country: None (occurrence: None)
  Receive Date: 20111108
  Receipt Date: 20110905
  Transmission Date: 20120403
  Serious: Yes (Hospitalization)
  Sender: FDA-Public Use
  Company Number: KV201100180

PATIENT
  Sex: Female

DRUGS (1)
  1. MAKENA [Suspect]
     Indication: PREMATURE DELIVERY
     Dosage: INTRAMUSCULAR
     Route: 030
     Dates: start: 20110101

REACTIONS (9)
  - HEADACHE [None]
  - VULVOVAGINAL DISCOMFORT [None]
  - FATIGUE [None]
  - MATERNAL EXPOSURE DURING PREGNANCY [None]
  - PREMATURE LABOUR [None]
  - DRUG INEFFECTIVE [None]
  - NAUSEA [None]
  - INJECTION SITE DISCOMFORT [None]
  - SHORTENED CERVIX [None]
